FAERS Safety Report 8228184-8 (Version None)
Quarter: 2012Q1

REPORT INFORMATION
  Report Type: 
  Country: None (occurrence: None)
  Receive Date: 20120322
  Receipt Date: 20111208
  Transmission Date: 20120608
  Serious: No
  Sender: FDA-Public Use
  Company Number: US-BRISTOL-MYERS SQUIBB COMPANY-16279697

PATIENT
  Age: 63 Year
  Sex: Female
  Weight: 54 kg

DRUGS (4)
  1. COMPAZINE [Concomitant]
     Indication: NAUSEA
  2. AMBIEN [Concomitant]
     Indication: SLEEP DISORDER
  3. IMODIUM [Concomitant]
  4. ERBITUX [Suspect]
     Indication: NEOPLASM MALIGNANT
     Dates: start: 20110921, end: 20111005

REACTIONS (7)
  - CHEILITIS [None]
  - SKIN FISSURES [None]
  - DRY SKIN [None]
  - SKIN EXFOLIATION [None]
  - RASH [None]
  - STOMATITIS [None]
  - HAEMORRHAGE [None]
